FAERS Safety Report 24667296 (Version 5)
Quarter: 2025Q2

REPORT INFORMATION
  Report Type: Spontaneous
  Country: US (occurrence: US)
  Receive Date: 20241126
  Receipt Date: 20250523
  Transmission Date: 20250717
  Serious: Yes (Other)
  Sender: ANI
  Company Number: US-ANIPHARMA-2024-US-062241

PATIENT
  Age: 64 Year
  Sex: Female
  Weight: 73.03 kg

DRUGS (17)
  1. CORTICOTROPIN [Suspect]
     Active Substance: CORTICOTROPIN
     Indication: Sarcoidosis
     Route: 058
     Dates: start: 202408
  2. METHOTREXATE [Concomitant]
     Active Substance: METHOTREXATE
  3. FOLIC ACID [Concomitant]
     Active Substance: FOLIC ACID
  4. Vitamin D+K2 [Concomitant]
  5. JUBLIA [Concomitant]
     Active Substance: EFINACONAZOLE
  6. MINERALS\VITAMINS [Concomitant]
     Active Substance: MINERALS\VITAMINS
  7. VITAMIN A [Concomitant]
     Active Substance: VITAMIN A
  8. FISH OIL [Concomitant]
     Active Substance: FISH OIL
  9. Arthocin [Concomitant]
  10. FAMOTIDINE [Concomitant]
     Active Substance: FAMOTIDINE
  11. RETAINE [Concomitant]
     Active Substance: HYPROMELLOSE 2910 (4000 MPA.S)
  12. OXERVATE [Suspect]
     Active Substance: CENEGERMIN-BKBJ
  13. SYNTHROID [Concomitant]
     Active Substance: LEVOTHYROXINE SODIUM
  14. DULOXETINE [Concomitant]
     Active Substance: DULOXETINE
  15. Lamictal EX [Concomitant]
  16. KLONOPIN [Concomitant]
     Active Substance: CLONAZEPAM
  17. ATORVASTATIN [Concomitant]
     Active Substance: ATORVASTATIN

REACTIONS (19)
  - Injection site reaction [Recovered/Resolved]
  - Incorrect dose administered [Recovered/Resolved]
  - Condition aggravated [Unknown]
  - Inappropriate schedule of product administration [Recovered/Resolved]
  - Sarcoidosis [Unknown]
  - Injection site bruising [Not Recovered/Not Resolved]
  - Thirst [Recovered/Resolved]
  - Rash [Recovered/Resolved]
  - Injection site pruritus [Recovered/Resolved]
  - Injection site erythema [Recovered/Resolved]
  - Injection site scar [Recovered/Resolved]
  - Vocal cord disorder [Not Recovered/Not Resolved]
  - Tremor [Not Recovered/Not Resolved]
  - Headache [Not Recovered/Not Resolved]
  - Insomnia [Not Recovered/Not Resolved]
  - Product dose omission issue [Recovered/Resolved]
  - Respiratory disorder [Unknown]
  - Fatigue [Not Recovered/Not Resolved]
  - Seizure [Unknown]

NARRATIVE: CASE EVENT DATE: 20240801
